FAERS Safety Report 8089246-1 (Version None)
Quarter: 2012Q1

REPORT INFORMATION
  Report Type: 
  Country: None (occurrence: None)
  Receive Date: 20120128
  Receipt Date: 20110708
  Transmission Date: 20120608
  Serious: No
  Sender: FDA-Public Use
  Company Number: US-ABBOTT-11P-163-0837486-00

PATIENT
  Age: 51 Year
  Sex: Female

DRUGS (11)
  1. ZINC SULFATE [Concomitant]
     Indication: MINERAL SUPPLEMENTATION
  2. HUMIRA [Suspect]
     Indication: CROHN'S DISEASE
     Dosage: INITIAL DOSE
     Dates: start: 20110708
  3. AZATHIOPRINE [Concomitant]
     Indication: CROHN'S DISEASE
     Dosage: 50 MG - 3 TABLETS DAILY
  4. CALCIUM [Concomitant]
     Indication: PRODUCT USED FOR UNKNOWN INDICATION
  5. ZINC SULFATE [Concomitant]
     Indication: VITAMIN SUPPLEMENTATION
     Dosage: DAILY
  6. VITAMIN D [Concomitant]
     Indication: PRODUCT USED FOR UNKNOWN INDICATION
  7. VITAMIN B COMPLEX CAP [Concomitant]
     Indication: PRODUCT USED FOR UNKNOWN INDICATION
  8. FLUOXETINE [Concomitant]
     Indication: DEPRESSION
     Dosage: 20 MG - DAILY
  9. FISH OIL [Concomitant]
     Indication: PRODUCT USED FOR UNKNOWN INDICATION
  10. FLUOXETINE [Concomitant]
     Indication: ANXIETY
  11. PRENATAL MULTI VIT [Concomitant]
     Indication: PRODUCT USED FOR UNKNOWN INDICATION

REACTIONS (4)
  - INJECTION SITE PAIN [None]
  - INJECTION SITE ERYTHEMA [None]
  - INJECTION SITE DISCOLOURATION [None]
  - DEVICE MALFUNCTION [None]
